FAERS Safety Report 15863135 (Version 1)
Quarter: 2019Q1

REPORT INFORMATION
  Report Type: Spontaneous
  Country: JP (occurrence: JP)
  Receive Date: 20190124
  Receipt Date: 20190124
  Transmission Date: 20190417
  Serious: Yes (Other)
  Sender: FDA-Public Use
  Company Number: JP-GLAXOSMITHKLINE-JP2019JPN009987

PATIENT
  Age: 47 Year
  Sex: Female

DRUGS (2)
  1. SERETIDE [Suspect]
     Active Substance: FLUTICASONE PROPIONATE\SALMETEROL XINAFOATE
     Indication: COUGH
     Dosage: UNK
     Route: 055
  2. SERETIDE [Suspect]
     Active Substance: FLUTICASONE PROPIONATE\SALMETEROL XINAFOATE
     Indication: COUGH
     Dosage: UNK
     Route: 055

REACTIONS (6)
  - Urticaria [Recovering/Resolving]
  - Dermatitis bullous [Recovering/Resolving]
  - Product use in unapproved indication [Unknown]
  - Superficial vein prominence [Unknown]
  - Skin depigmentation [Unknown]
  - Erythema [Recovering/Resolving]
